FAERS Safety Report 9573105 (Version 1)
Quarter: 2013Q4

REPORT INFORMATION
  Report Type: Spontaneous
  Country: US (occurrence: US)
  Receive Date: 20131001
  Receipt Date: 20131001
  Transmission Date: 20140711
  Serious: No
  Sender: FDA-Public Use
  Company Number: US-BIOGENIDEC-2013BI069870

PATIENT
  Sex: Female

DRUGS (1)
  1. TECFIDERA [Suspect]
     Indication: PRODUCT USED FOR UNKNOWN INDICATION

REACTIONS (8)
  - Malaise [Unknown]
  - Oropharyngeal pain [Unknown]
  - Arthralgia [Unknown]
  - Memory impairment [Unknown]
  - Pain [Unknown]
  - Feeling hot [Unknown]
  - Muscular weakness [Unknown]
  - Gastric disorder [Unknown]
